FAERS Safety Report 14646895 (Version 2)
Quarter: 2018Q2

REPORT INFORMATION
  Report Type: Spontaneous
  Country: FR (occurrence: FR)
  Receive Date: 20180316
  Receipt Date: 20180528
  Transmission Date: 20180711
  Serious: Yes (Other)
  Sender: FDA-Public Use
  Company Number: FR-MERCK KGAA-2043899

PATIENT
  Age: 51 Year
  Sex: Female

DRUGS (2)
  1. NOVOTHYROX [Suspect]
     Active Substance: LEVOTHYROXINE SODIUM
     Indication: POST PROCEDURAL HYPOTHYROIDISM
     Dates: start: 201706
  2. LEVOTHYROX NF [Suspect]
     Active Substance: LEVOTHYROXINE SODIUM

REACTIONS (23)
  - Visual impairment [None]
  - Social avoidant behaviour [None]
  - Initial insomnia [None]
  - Loss of libido [None]
  - Hyperthyroidism [Recovered/Resolved]
  - Blood thyroid stimulating hormone increased [Recovered/Resolved]
  - Fatigue [None]
  - Anger [None]
  - Disturbance in attention [None]
  - Asthenia [None]
  - Crying [None]
  - Dyspnoea [None]
  - Dizziness [None]
  - Heart rate increased [None]
  - Swelling [None]
  - Irritability [None]
  - Diarrhoea [None]
  - Insomnia [None]
  - Dysphagia [None]
  - Dry mouth [None]
  - Muscle spasms [None]
  - Alopecia [None]
  - Headache [None]

NARRATIVE: CASE EVENT DATE: 2017
